FAERS Safety Report 7337622-4 (Version None)
Quarter: 2011Q1

REPORT INFORMATION
  Report Type: 
  Country: None (occurrence: None)
  Receive Date: 20110303
  Receipt Date: 20110303
  Transmission Date: 20110831
  Serious: Yes (Hospitalization, Disabling, Other)
  Sender: FDA-Public Use
  Company Number: None

PATIENT
  Age: 57 Year
  Sex: Female
  Weight: 73.0291 kg

DRUGS (2)
  1. NITROFURANTOIN [Suspect]
     Indication: URINARY TRACT INFECTION
     Dosage: 2 DAILY PO
     Route: 048
     Dates: start: 20110228, end: 20110301
  2. NITROFURANTOIN [Suspect]
     Indication: URINARY TRACT INFECTION
     Dosage: 2 DAILY PO
     Route: 048
     Dates: start: 20110301, end: 20110301

REACTIONS (14)
  - NAUSEA [None]
  - HEADACHE [None]
  - ASTHENIA [None]
  - DYSPNOEA [None]
  - DIZZINESS [None]
  - PRURITUS [None]
  - PYREXIA [None]
  - ABDOMINAL PAIN UPPER [None]
  - DECREASED APPETITE [None]
  - PARAESTHESIA [None]
  - PALPITATIONS [None]
  - BLOOD PRESSURE INCREASED [None]
  - CHILLS [None]
  - HEART RATE INCREASED [None]
